FAERS Safety Report 25060036 (Version 1)
Quarter: 2025Q1

REPORT INFORMATION
  Report Type: Spontaneous
  Country: US (occurrence: US)
  Receive Date: 20250310
  Receipt Date: 20250310
  Transmission Date: 20250409
  Serious: No
  Sender: CSL Plasma
  Company Number: US-CSLP-42714933335-V12875068-54

PATIENT
  Age: 24 Year
  Sex: Female

DRUGS (2)
  1. ANTICOAGULANT SODIUM CITRATE [Suspect]
     Active Substance: SODIUM CITRATE
     Indication: Anticoagulant therapy
     Route: 050
     Dates: start: 20250205, end: 20250205
  2. IRON [Concomitant]
     Active Substance: IRON
     Indication: Anaemia

REACTIONS (12)
  - Feeling hot [Unknown]
  - Flushing [Unknown]
  - Abdominal pain [Unknown]
  - Anxiety [Unknown]
  - Hyperhidrosis [Unknown]
  - Asthenia [Unknown]
  - Vision blurred [Unknown]
  - Dysgeusia [Unknown]
  - Hypoaesthesia [Unknown]
  - Epigastric discomfort [Unknown]
  - Nausea [Unknown]
  - Paraesthesia [Unknown]

NARRATIVE: CASE EVENT DATE: 20250205
